FAERS Safety Report 13371540 (Version 1)
Quarter: 2017Q1

REPORT INFORMATION
  Report Type: Report from Study
  Country: MX (occurrence: MX)
  Receive Date: 20170324
  Receipt Date: 20170324
  Transmission Date: 20170429
  Serious: Yes (Other)
  Sender: FDA-Public Use
  Company Number: MX-TAKEDA-2017MPI002681

PATIENT
  Sex: Female

DRUGS (1)
  1. VELCADE [Suspect]
     Active Substance: BORTEZOMIB
     Indication: PLASMA CELL MYELOMA
     Dosage: UNK
     Route: 065
     Dates: start: 201304, end: 201310

REACTIONS (8)
  - Anosmia [Unknown]
  - Deafness [Unknown]
  - Headache [Unknown]
  - Skin exfoliation [Unknown]
  - Vertigo [Unknown]
  - Neuropathy peripheral [Unknown]
  - Hair disorder [Unknown]
  - Amnesia [Unknown]
